FAERS Safety Report 22180213 (Version 2)
Quarter: 2023Q2

REPORT INFORMATION
  Report Type: Report from Study
  Country: CA (occurrence: CA)
  Receive Date: 20230406
  Receipt Date: 20230621
  Transmission Date: 20230721
  Serious: Yes (Death, Hospitalization, Other)
  Sender: FDA-Public Use
  Company Number: CA-JNJFOC-20221044786

PATIENT
  Age: 70 Year
  Sex: Male

DRUGS (10)
  1. SELEXIPAG [Suspect]
     Active Substance: SELEXIPAG
     Indication: Pulmonary arterial hypertension
     Route: 048
     Dates: start: 20221011
  2. SELEXIPAG [Suspect]
     Active Substance: SELEXIPAG
     Indication: Pulmonary hypertension
     Route: 048
     Dates: start: 20221018
  3. SELEXIPAG [Suspect]
     Active Substance: SELEXIPAG
     Dosage: 800MCG IN AM, 600MCG PM
     Route: 048
  4. SELEXIPAG [Suspect]
     Active Substance: SELEXIPAG
     Route: 048
     Dates: start: 20221117
  5. SELEXIPAG [Suspect]
     Active Substance: SELEXIPAG
     Route: 048
  6. SELEXIPAG [Suspect]
     Active Substance: SELEXIPAG
     Dosage: 600MCG IN THE?MORNING AND 400MCG IN THE AFTERNOON
     Route: 048
  7. SELEXIPAG [Suspect]
     Active Substance: SELEXIPAG
     Dosage: 600MCG IN THE MORNING AND 400MCG IN THE AFTERNOON
     Route: 048
     Dates: start: 20220314
  8. SELEXIPAG [Suspect]
     Active Substance: SELEXIPAG
     Dosage: 800MCG IN THE MORNING, AND 600MCG IN THE AFTERNOON
     Route: 048
     Dates: start: 20230320
  9. SELEXIPAG [Suspect]
     Active Substance: SELEXIPAG
     Route: 048
     Dates: start: 202303
  10. SELEXIPAG [Suspect]
     Active Substance: SELEXIPAG
     Route: 048
     Dates: start: 20210623

REACTIONS (8)
  - Death [Fatal]
  - Dyspnoea [Not Recovered/Not Resolved]
  - Hallucinations, mixed [Unknown]
  - Hypotension [Unknown]
  - Asthenia [Unknown]
  - Chest discomfort [Recovered/Resolved]
  - Off label use [Unknown]
  - Crying [Unknown]

NARRATIVE: CASE EVENT DATE: 20221020
